FAERS Safety Report 5977820-5 (Version None)
Quarter: 2008Q4

REPORT INFORMATION
  Report Type: 
  Country: None (occurrence: None)
  Receive Date: 20081203
  Receipt Date: 20081127
  Transmission Date: 20090506
  Serious: Yes (Death, Life-Threatening, Hospitalization)
  Sender: FDA-Public Use
  Company Number: FR-ELI_LILLY_AND_COMPANY-FR200811006146

PATIENT
  Sex: Male

DRUGS (7)
  1. GEMZAR [Suspect]
     Indication: LUNG SQUAMOUS CELL CARCINOMA STAGE UNSPECIFIED
     Dosage: 1775 MG/INFUSION (DAY ONE AND DAY EIGHT OF 21 DAY CYCLE)
     Route: 042
     Dates: start: 20080717
  2. HYTACAND [Concomitant]
     Dosage: 8 MG, DAILY (1/D)
     Route: 048
  3. SOLU-MEDROL [Concomitant]
     Dosage: 40 MG, DAILY (1/D)
     Route: 042
  4. ZYLORIC [Concomitant]
     Dosage: 100 MG, DAILY (1/D)
     Route: 048
  5. ISOPTIN [Concomitant]
     Dosage: 240 MG, DAILY (1/D)
     Route: 048
  6. RABEPRAZOLE SODIUM [Concomitant]
     Dosage: 20 MG, DAILY (1/D)
     Route: 048
  7. PRAVASTATIN [Concomitant]
     Dosage: UNK, UNKNOWN
     Route: 048

REACTIONS (2)
  - DISSEMINATED INTRAVASCULAR COAGULATION [None]
  - PERIPHERAL ISCHAEMIA [None]
